FAERS Safety Report 5596945-X (Version None)
Quarter: 2007Q4

REPORT INFORMATION
  Report Type: 
  Country: None (occurrence: None)
  Receive Date: 20071220
  Receipt Date: 20070213
  Transmission Date: 20080405
  Serious: Yes (Hospitalization)
  Sender: FDA-Public Use
  Company Number: ENTC2007-0023

PATIENT
  Age: 78 Year
  Sex: Male

DRUGS (1)
  1. STALEVO 100 [Suspect]
     Indication: PARKINSON'S DISEASE
     Dosage: 600 MG, 6 IN 1 D, ORAL
     Route: 048
     Dates: start: 20060701, end: 20070118

REACTIONS (3)
  - CONFUSIONAL STATE [None]
  - DIARRHOEA [None]
  - FALL [None]
